FAERS Safety Report 10153743 (Version 1)
Quarter: 2014Q2

REPORT INFORMATION
  Report Type: Spontaneous
  Country: US (occurrence: US)
  Receive Date: 20140506
  Receipt Date: 20140506
  Transmission Date: 20141212
  Serious: Yes (Other)
  Sender: FDA-Public Use
  Company Number: US-BEH-2014042201

PATIENT
  Sex: Female
  Weight: 44 kg

DRUGS (23)
  1. HIZENTRA [Suspect]
     Indication: IMMUNODEFICIENCY COMMON VARIABLE
     Route: 058
  2. HIZENTRA [Suspect]
     Route: 058
  3. ACETAMINOPHEN [Concomitant]
  4. DIPHENHYDRAMINE [Concomitant]
  5. LIDOCAINE/PRILOCAINE [Concomitant]
  6. EPI PEN [Concomitant]
  7. LMX [Concomitant]
  8. CYMBALTA [Concomitant]
  9. CREON DR [Concomitant]
  10. METHADONE [Concomitant]
  11. CLONAZEPAM [Concomitant]
  12. ETODOLAC [Concomitant]
  13. ZOFRAN [Concomitant]
  14. FERROUS SULFATE [Concomitant]
  15. FOLTX [Concomitant]
  16. VITAMIN D2 [Concomitant]
     Dosage: 50000 UNIT
  17. ASPIRIN [Concomitant]
  18. PERCOCET [Concomitant]
     Dosage: 10-325 MG
  19. OCUVITE [Concomitant]
  20. FROVA [Concomitant]
  21. VESICARE [Concomitant]
  22. DILAUDID [Concomitant]
  23. ZEGERID [Concomitant]

REACTIONS (3)
  - Head and neck cancer [Unknown]
  - Back pain [Unknown]
  - Headache [Unknown]
